FAERS Safety Report 8388774-9 (Version None)
Quarter: 2012Q2

REPORT INFORMATION
  Report Type: 
  Country: None (occurrence: None)
  Receive Date: 20120528
  Receipt Date: 20120515
  Transmission Date: 20120825
  Serious: Yes (Other)
  Sender: FDA-Public Use
  Company Number: FR-BRISTOL-MYERS SQUIBB COMPANY-16629339

PATIENT
  Age: 1 Day

DRUGS (11)
  1. DOXORUBICIN HCL [Suspect]
     Route: 064
  2. ETOPOSIDE [Suspect]
     Route: 064
  3. CYTARABINE [Suspect]
     Route: 064
  4. VINCRISTINE [Suspect]
     Route: 064
  5. RITUXIMAB [Suspect]
     Route: 064
  6. MESNA [Suspect]
     Route: 064
  7. LEUCOVORIN CALCIUM [Suspect]
     Route: 064
  8. IFOSFAMIDE [Suspect]
     Dosage: 1DF= 5G/M3
     Route: 064
  9. CYCLOPHOSPHAMIDE [Suspect]
     Route: 064
  10. METHOTREXATE [Suspect]
     Route: 064
  11. NEUPOGEN [Suspect]
     Route: 064

REACTIONS (2)
  - PREMATURE BABY [None]
  - FOETAL GROWTH RESTRICTION [None]
